FAERS Safety Report 12350674 (Version 1)
Quarter: 2016Q2

REPORT INFORMATION
  Report Type: Spontaneous
  Country: US (occurrence: None)
  Receive Date: 20160509
  Receipt Date: 20160509
  Transmission Date: 20160815
  Serious: Yes (Other)
  Sender: FDA-Public Use
  Company Number: None

PATIENT
  Age: 42 Year
  Sex: Female
  Weight: 57.61 kg

DRUGS (3)
  1. SYNTHROID [Concomitant]
     Active Substance: LEVOTHYROXINE SODIUM
  2. BENZONATATE. [Suspect]
     Active Substance: BENZONATATE
     Indication: COUGH
     Route: 048
     Dates: start: 20160502, end: 20160505
  3. BENZONATATE. [Suspect]
     Active Substance: BENZONATATE
     Indication: INFLUENZA
     Route: 048
     Dates: start: 20160502, end: 20160505

REACTIONS (5)
  - Anxiety [None]
  - Insomnia [None]
  - Cognitive disorder [None]
  - Confusional state [None]
  - Agitation [None]

NARRATIVE: CASE EVENT DATE: 20160505
